FAERS Safety Report 4758615-7 (Version None)
Quarter: 2005Q3

REPORT INFORMATION
  Report Type: 
  Country: None (occurrence: None)
  Receive Date: 20050901
  Receipt Date: 20050822
  Transmission Date: 20060218
  Serious: Yes (Hospitalization)
  Sender: FDA-Public Use
  Company Number: FR-BRISTOL-MYERS SQUIBB COMPANY-13089644

PATIENT
  Age: 64 Year
  Sex: Female

DRUGS (15)
  1. VASTEN TABS 20 MG [Suspect]
     Indication: HYPERLIPIDAEMIA
     Route: 048
     Dates: end: 20050304
  2. PLAVIX [Suspect]
     Indication: ARTERIAL STENOSIS
     Route: 048
     Dates: start: 20050218, end: 20050303
  3. TRIATEC [Suspect]
     Indication: HYPERTENSION
     Route: 048
     Dates: end: 20050307
  4. CLONAZEPAM [Suspect]
     Indication: NEUROPATHY PERIPHERAL
     Route: 048
     Dates: end: 20050304
  5. PAROXETINE HCL [Suspect]
     Indication: DYSTHYMIC DISORDER
     Route: 048
     Dates: end: 20050308
  6. FUROSEMIDE [Concomitant]
     Dosage: 5 U TABLETS
     Route: 048
  7. EUPRESSYL [Concomitant]
     Route: 048
  8. LOXEN [Concomitant]
     Indication: HYPERTENSION
     Route: 048
  9. MIXTARD HUMAN 70/30 [Concomitant]
     Indication: DIABETES MELLITUS
     Route: 058
  10. LORAZEPAM [Concomitant]
     Route: 048
  11. NOCTAMID [Concomitant]
     Route: 048
  12. LEVOTHYROXINE SODIUM [Concomitant]
     Indication: HYPOTHYROIDISM
     Dosage: 125 UG TABLETS
     Route: 048
  13. PANTOPRAZOLE SODIUM [Concomitant]
     Dosage: 1 U TABLETS
     Route: 048
  14. PARACETAMOL [Concomitant]
     Dosage: 6 U TABLETS
     Route: 048
  15. UN-ALFA [Concomitant]
     Indication: RENAL FAILURE
     Dosage: 1 U
     Route: 048
     Dates: end: 20050311

REACTIONS (2)
  - HAEMATOMA [None]
  - RHABDOMYOLYSIS [None]
